FAERS Safety Report 9372843 (Version 9)
Quarter: 2014Q3

REPORT INFORMATION
  Report Type: Report from Study
  Country: US (occurrence: US)
  Receive Date: 20130627
  Receipt Date: 20140729
  Transmission Date: 20150326
  Serious: Yes (Congenital Anomaly)
  Sender: FDA-Public Use
  Company Number: US-ROCHE-1240197

PATIENT
  Age: 0 Day
  Sex: Female
  Weight: 3.4 kg

DRUGS (3)
  1. RIBAVIRIN. [Suspect]
     Active Substance: RIBAVIRIN
     Indication: PRODUCT USED FOR UNKNOWN INDICATION
     Route: 064
  2. ALBUTEROL. [Concomitant]
     Active Substance: ALBUTEROL
     Indication: ASTHMA
     Route: 064
  3. PEGINTERFERON ALFA-2A [Suspect]
     Active Substance: PEGINTERFERON ALFA-2A
     Indication: PRODUCT USED FOR UNKNOWN INDICATION
     Route: 064

REACTIONS (7)
  - Infantile vomiting [Unknown]
  - Atrial septal defect [Recovered/Resolved]
  - Jaundice neonatal [Unknown]
  - Exposure to communicable disease [Unknown]
  - Maternal exposure timing unspecified [Unknown]
  - Congenital arterial malformation [Unknown]
  - Congenital tongue anomaly [Unknown]

NARRATIVE: CASE EVENT DATE: 20130316
